FAERS Safety Report 6646009-9 (Version None)
Quarter: 2010Q1

REPORT INFORMATION
  Report Type: 
  Country: None (occurrence: None)
  Receive Date: 20100323
  Receipt Date: 20100311
  Transmission Date: 20100710
  Serious: Yes (Other)
  Sender: FDA-Public Use
  Company Number: US-PFIZER INC-2010032653

PATIENT
  Sex: Male
  Weight: 106 kg

DRUGS (3)
  1. DIFLUCAN [Suspect]
     Indication: FUNGAL INFECTION
     Dosage: 200 MG, UNK
     Route: 048
  2. DIFLUCAN [Suspect]
     Dosage: 400 MG, UNK
     Route: 048
  3. VITAMINS WITH MINERALS [Concomitant]
     Dosage: UNK

REACTIONS (6)
  - ALCOHOL ABUSE [None]
  - DRUG INEFFECTIVE [None]
  - ENZYME ABNORMALITY [None]
  - FUNGAL INFECTION [None]
  - HEPATIC ENZYME ABNORMAL [None]
  - OSTEOARTHRITIS [None]
